FAERS Safety Report 9904250 (Version 1)
Quarter: 2014Q1

REPORT INFORMATION
  Report Type: Spontaneous
  Country: US (occurrence: None)
  Receive Date: 20140210
  Receipt Date: 20140210
  Transmission Date: 20141002
  Serious: Yes (Hospitalization)
  Sender: FDA-Public Use
  Company Number: SYM-2014-16962

PATIENT
  Age: 61 Year
  Sex: Male

DRUGS (2)
  1. XENAZINE [Suspect]
     Indication: DYSKINESIA
     Route: 048
     Dates: start: 20130829
  2. XENAZINE [Suspect]
     Indication: OFF LABEL USE
     Route: 048
     Dates: start: 20130829

REACTIONS (1)
  - Investigation [None]
